FAERS Safety Report 4900631-6 (Version None)
Quarter: 2006Q1

REPORT INFORMATION
  Report Type: 
  Country: None (occurrence: None)
  Receive Date: 20060203
  Receipt Date: 20060124
  Transmission Date: 20060701
  Serious: Yes (Hospitalization, Other)
  Sender: FDA-Public Use
  Company Number: RU-BRISTOL-MYERS SQUIBB COMPANY-13258322

PATIENT
  Age: 48 Year
  Sex: Female

DRUGS (6)
  1. CISPLATIN [Suspect]
     Indication: METASTATIC GASTRIC CANCER
     Route: 041
     Dates: start: 20051202, end: 20051202
  2. TS-1 [Suspect]
     Indication: METASTATIC GASTRIC CANCER
     Route: 048
     Dates: start: 20051202, end: 20051222
  3. METOCLOPRAMIDE [Concomitant]
     Route: 030
     Dates: start: 20051105
  4. DROTAVERINE [Concomitant]
     Route: 030
     Dates: start: 20051105
  5. FAMOTIDINE [Concomitant]
     Route: 042
     Dates: start: 20051105
  6. ESSENTIALE [Concomitant]
     Indication: PROPHYLAXIS
     Route: 048
     Dates: start: 20051105

REACTIONS (1)
  - HEPATITIS TOXIC [None]
